FAERS Safety Report 4875638-8 (Version None)
Quarter: 2006Q1

REPORT INFORMATION
  Report Type: 
  Country: None (occurrence: None)
  Receive Date: 20060109
  Receipt Date: 20060103
  Transmission Date: 20060701
  Serious: Yes (Other)
  Sender: FDA-Public Use
  Company Number: GB-KINGPHARMUSA00001-K200600003

PATIENT
  Age: 21 Year
  Sex: Male

DRUGS (7)
  1. KEMADRIN [Suspect]
     Indication: AKATHISIA
     Dosage: 5 MG, QD
     Route: 048
     Dates: start: 20041201, end: 20050418
  2. KEMADRIN [Suspect]
     Route: 048
  3. ARIPIPRAZOLE [Suspect]
     Indication: PSYCHOTIC DISORDER
     Dosage: 15 MG, QD
     Route: 048
     Dates: start: 20050302, end: 20050421
  4. ARIPIPRAZOLE [Suspect]
     Dosage: 30 MG, QD
     Route: 048
     Dates: start: 20050422
  5. CITALOPRAM HYDROBROMIDE [Concomitant]
     Dates: start: 20051201
  6. CLONAZEPAM [Concomitant]
     Dates: start: 20041201
  7. RISPERIDONE [Concomitant]
     Dates: start: 20041201, end: 20050301

REACTIONS (4)
  - AKATHISIA [None]
  - CONDITION AGGRAVATED [None]
  - RESTLESSNESS [None]
  - SUICIDAL IDEATION [None]
